FAERS Safety Report 8314092-0 (Version None)
Quarter: 2012Q2

REPORT INFORMATION
  Report Type: 
  Country: None (occurrence: None)
  Receive Date: 20120426
  Receipt Date: 20120411
  Transmission Date: 20120825
  Serious: No
  Sender: FDA-Public Use
  Company Number: JP-PFIZER INC-2012092679

PATIENT
  Sex: Female
  Weight: 0.92 kg

DRUGS (1)
  1. ARGATROBAN [Suspect]
     Route: 064

REACTIONS (1)
  - FOETAL EXPOSURE DURING PREGNANCY [None]
